FAERS Safety Report 8315450 (Version 2)
Quarter: 2013Q1

REPORT INFORMATION
  Report Type: Spontaneous
  Country: US (occurrence: US)
  Receive Date: 20111229
  Receipt Date: 20130221
  Transmission Date: 20140127
  Serious: Yes (Life-Threatening, Congenital Anomaly, Other)
  Sender: FDA-Public Use
  Company Number: US-PFIZER INC-2011289439

PATIENT
  Sex: Female

DRUGS (14)
  1. ZOLOFT [Suspect]
     Dosage: UNK
     Route: 064
     Dates: start: 2005
  2. TRAZODONE [Concomitant]
     Route: 064
  3. HYDROCODONE [Concomitant]
     Dosage: UNK
     Route: 064
  4. METRONIDAZOLE [Concomitant]
     Dosage: UNK
     Route: 064
  5. LAMOTRIGINE [Concomitant]
     Dosage: UNK
     Route: 064
  6. AZITHROMYCIN [Concomitant]
     Dosage: UNK
     Route: 064
  7. ORTHO EVRA [Concomitant]
     Dosage: UNK
     Route: 064
  8. METANX [Concomitant]
     Dosage: UNK
     Route: 064
  9. FLUCONAZOLE [Concomitant]
     Dosage: UNK
     Route: 064
  10. NECON [Concomitant]
     Dosage: UNK
     Route: 064
  11. AMOX-CLAV [Concomitant]
     Dosage: UNK
     Route: 064
  12. PRO-AIR [Concomitant]
     Route: 064
  13. PRENAPLUS [Concomitant]
     Dosage: UNK
     Route: 064
  14. PROPOXYPHENE-N [Concomitant]
     Dosage: UNK
     Route: 064

REACTIONS (3)
  - Maternal exposure timing unspecified [Unknown]
  - Spina bifida [Unknown]
  - Premature baby [Unknown]
